FAERS Safety Report 25330350 (Version 1)
Quarter: 2025Q2

REPORT INFORMATION
  Report Type: Spontaneous
  Country: US (occurrence: None)
  Receive Date: 20250516
  Receipt Date: 20250516
  Transmission Date: 20250717
  Serious: Yes (Other)
  Sender: FDA-CTU
  Company Number: None

PATIENT
  Age: 12 Year
  Sex: Female
  Weight: 49.4 kg

DRUGS (1)
  1. BENLYSTA [Suspect]
     Active Substance: BELIMUMAB
     Dates: start: 20250219

REACTIONS (3)
  - Rhinorrhoea [None]
  - Headache [None]
  - Rash [None]

NARRATIVE: CASE EVENT DATE: 20250514
